FAERS Safety Report 7246876-4 (Version None)
Quarter: 2011Q1

REPORT INFORMATION
  Report Type: 
  Country: None (occurrence: None)
  Receive Date: 20110127
  Receipt Date: 20110124
  Transmission Date: 20110831
  Serious: Yes (Death, Other)
  Sender: FDA-Public Use
  Company Number: JP-BAYER-200812845BYL

PATIENT
  Sex: Female
  Weight: 51 kg

DRUGS (18)
  1. TEGRETOL [Concomitant]
     Dosage: 2 DF, QD
     Route: 048
  2. SORAFENIB (RAF KINASE INHIBITOR) [Suspect]
     Dosage: 600 MG, QD
     Route: 048
     Dates: start: 20081230, end: 20090324
  3. ZOMETA [Concomitant]
     Dosage: 4 MG, QD
     Route: 042
     Dates: start: 20081028, end: 20081028
  4. ZOMETA [Concomitant]
     Dosage: 4 MG, QD
     Route: 042
     Dates: start: 20081224, end: 20081224
  5. PREDNISOLONE [Concomitant]
     Dosage: 15 MG, QD
     Route: 048
  6. GASMOTIN [Concomitant]
     Dosage: 15 MG, QD
     Route: 048
     Dates: start: 20081111, end: 20081231
  7. SORAFENIB (RAF KINASE INHIBITOR) [Suspect]
     Indication: RENAL CELL CARCINOMA
     Dosage: 800 MG, QD
     Route: 048
     Dates: start: 20080925, end: 20081106
  8. LOXONIN [Concomitant]
     Dosage: 3 DF, QD
     Route: 048
  9. MOBIC [Concomitant]
     Dosage: 10 MG, QD
     Route: 048
  10. ZANTAC [Concomitant]
     Dosage: 75 MG, QD
     Route: 048
  11. DUROTEP [Concomitant]
     Route: 062
     Dates: start: 20080819
  12. SORAFENIB (RAF KINASE INHIBITOR) [Suspect]
     Dosage: 600 MG, QD
     Route: 048
     Dates: start: 20081202, end: 20081219
  13. METHYCOBAL [Concomitant]
     Dosage: 3 DF, QD
     Route: 048
  14. PREDNISOLONE [Concomitant]
     Dosage: 2 DF, QD
     Route: 048
  15. UBRETID [Concomitant]
     Dosage: 10 MG, QD
     Route: 048
     Dates: start: 20081227, end: 20090403
  16. MAGMITT [Concomitant]
     Dosage: 3 DF, QD
     Route: 048
  17. OXINORM [Concomitant]
     Route: 048
  18. RIVOTRIL [Concomitant]
     Dosage: 0.5 MG, QD
     Route: 048

REACTIONS (8)
  - ANAEMIA [None]
  - WHITE BLOOD CELL COUNT DECREASED [None]
  - FACE OEDEMA [None]
  - HYPERLIPASAEMIA [None]
  - PLATELET COUNT DECREASED [None]
  - RENAL CELL CARCINOMA [None]
  - DECREASED APPETITE [None]
  - SENSORY DISTURBANCE [None]
